FAERS Safety Report 11739590 (Version 2)
Quarter: 2015Q4

REPORT INFORMATION
  Report Type: Spontaneous
  Country: JP (occurrence: JP)
  Receive Date: 20151113
  Receipt Date: 20151123
  Transmission Date: 20160304
  Serious: Yes (Other)
  Sender: FDA-Public Use
  Company Number: JP-BAXTER-2015BAX060945

PATIENT
  Age: 9 Year
  Sex: Female

DRUGS (5)
  1. CISPLATIN. [Suspect]
     Active Substance: CISPLATIN
     Indication: ADRENAL NEOPLASM
     Route: 065
  2. VP-16 [Suspect]
     Active Substance: ETOPOSIDE
     Indication: ADRENAL NEOPLASM
     Route: 065
  3. L-PAM [Suspect]
     Active Substance: MELPHALAN
     Indication: BONE MARROW CONDITIONING REGIMEN
     Route: 065
     Dates: start: 199608
  4. ENDOXAN 1G [Suspect]
     Active Substance: CYCLOPHOSPHAMIDE
     Indication: ADRENAL NEOPLASM
     Route: 065
  5. PIRARUBICIN HYDROCHLORIDE [Suspect]
     Active Substance: PIRARUBICIN HYDROCHLORIDE
     Indication: ADRENAL NEOPLASM
     Route: 065

REACTIONS (8)
  - Osteochondroma [Unknown]
  - Ovarian failure [Unknown]
  - Glucose tolerance impaired [Unknown]
  - Cataract [Unknown]
  - Haemangioma of liver [Unknown]
  - Follicular thyroid cancer [Recovered/Resolved]
  - Hepatic steatosis [Unknown]
  - Second primary malignancy [Recovered/Resolved]

NARRATIVE: CASE EVENT DATE: 200405
